FAERS Safety Report 9717247 (Version 1)
Quarter: 2013Q4

REPORT INFORMATION
  Report Type: Spontaneous
  Country: CA (occurrence: None)
  Receive Date: 20131125
  Receipt Date: 20131125
  Transmission Date: 20140711
  Serious: Yes (Life-Threatening, Hospitalization)
  Sender: FDA-Public Use
  Company Number: AUR-APL-2013-09670

PATIENT
  Age: 42 Year
  Sex: Female

DRUGS (8)
  1. CITALOPRAM [Suspect]
     Indication: PRODUCT USED FOR UNKNOWN INDICATION
     Dosage: 20 MG (20 MG, 1 IN 1 D), ORAL
  2. ATIVAN (LORAZEPAM) [Suspect]
     Indication: PRODUCT USED FOR UNKNOWN INDICATION
     Dosage: 1 MG (1 MG, 1 IN 1 D), ORAL
  3. CLONAZEPAM (CLONAZEPAM) (CLONAZEPAM) [Suspect]
     Indication: PRODUCT USED FOR UNKNOWN INDICATION
  4. ABILIFY (ARIPIPRAZOLE) [Suspect]
     Indication: PRODUCT USED FOR UNKNOWN INDICATION
  5. KALETRA [Suspect]
     Indication: PRODUCT USED FOR UNKNOWN INDICATION
     Dosage: 4 DOSAGE FORMS (2 DOSAGE FORMS, 2 IN 1D)
  6. PANTOPRAZOLE (PANTOPRAZOLE) [Concomitant]
  7. COMBIVIR (ZIDOVUDINE W/LAMIVUDINE) [Concomitant]
  8. CALCIUM (CALCIUM) [Concomitant]

REACTIONS (12)
  - Depression [None]
  - Fatigue [None]
  - Libido decreased [None]
  - Memory impairment [None]
  - Mutism [None]
  - Personality disorder [None]
  - Psychotic disorder [None]
  - Schizoaffective disorder [None]
  - Stress [None]
  - Suicidal ideation [None]
  - Suicide attempt [None]
  - Intentional self-injury [None]
